FAERS Safety Report 17414521 (Version 5)
Quarter: 2020Q4

REPORT INFORMATION
  Report Type: Spontaneous
  Country: US (occurrence: US)
  Receive Date: 20200213
  Receipt Date: 20201110
  Transmission Date: 20210113
  Serious: Yes (Hospitalization)
  Sender: FDA-Public Use
  Company Number: US-PFIZER INC-2020021189

PATIENT
  Age: 71 Year
  Sex: Female

DRUGS (3)
  1. DILANTIN [Suspect]
     Active Substance: PHENYTOIN
     Indication: TREMOR
     Dosage: 100 MG, 3X/DAY (2 Q AM, 1 Q AFTERNOON)
  2. DILANTIN [Suspect]
     Active Substance: PHENYTOIN
     Indication: LOSS OF CONSCIOUSNESS
     Dosage: 200 MG, 2X/DAY
     Route: 048
     Dates: start: 20200123
  3. DILANTIN [Suspect]
     Active Substance: PHENYTOIN
     Indication: SEIZURE
     Dosage: 200 MG, 2X/DAY
     Route: 048
     Dates: end: 20200107

REACTIONS (1)
  - Self-medication [Unknown]

NARRATIVE: CASE EVENT DATE: 20200107
